FAERS Safety Report 8305423 (Version 2)
Quarter: 2014Q3

REPORT INFORMATION
  Report Type: Spontaneous
  Country: CH (occurrence: CH)
  Receive Date: 20111221
  Receipt Date: 20140801
  Transmission Date: 20150326
  Serious: Yes (Other)
  Sender: FDA-Public Use
  Company Number: CH-ROCHE-1020922

PATIENT
  Sex: Male

DRUGS (2)
  1. ROACCUTAN [Suspect]
     Active Substance: ISOTRETINOIN
     Dosage: FREQUENCY: DOSE DECREASED TO 10 MG EVERY 2-3 DAYS.
     Route: 048
  2. ROACCUTAN [Suspect]
     Active Substance: ISOTRETINOIN
     Indication: ACNE
     Route: 064

REACTIONS (2)
  - Hypoglycaemia neonatal [Recovered/Resolved]
  - Exposure during pregnancy [Unknown]
